FAERS Safety Report 19656593 (Version 1)
Quarter: 2021Q3

REPORT INFORMATION
  Report Type: Report from Study
  Country: CA (occurrence: CA)
  Receive Date: 20210804
  Receipt Date: 20210804
  Transmission Date: 20211014
  Serious: Yes (Other)
  Sender: FDA-Public Use
  Company Number: CA-NALPROPION PHARMACEUTICALS INC.-2021-013517

PATIENT

DRUGS (7)
  1. MULTIVITAMIN                       /07504101/ [Concomitant]
     Active Substance: VITAMINS
     Indication: ROUTINE HEALTH MAINTENANCE
     Dosage: 1 IN 1 D
     Route: 048
  2. MAGNESIUM [Concomitant]
     Active Substance: MAGNESIUM
     Indication: CONSTIPATION
     Dosage: FREQUENCY: AS NECESSARY (PRN)
     Route: 048
  3. CONTRAVE [Suspect]
     Active Substance: BUPROPION HYDROCHLORIDE\NALTREXONE HYDROCHLORIDE
     Indication: WEIGHT CONTROL
     Dosage: STRENGTH: 90/8 MILLIGRAM (1 DOSAGE FORMS, 1 IN 1 D)
     Route: 048
     Dates: start: 20210513, end: 202105
  4. CONTRAVE [Suspect]
     Active Substance: BUPROPION HYDROCHLORIDE\NALTREXONE HYDROCHLORIDE
     Dosage: STRENGTH: 90/8 MILLIGRAM (2 DOSAGE FORMS, 1 IN 12 HR)
     Route: 048
     Dates: start: 20210616
  5. IUD NOS [Concomitant]
     Active Substance: COPPER OR LEVONORGESTREL
     Indication: CONTRACEPTION
     Dosage: 1 IN 1 D
  6. CONTRAVE [Suspect]
     Active Substance: BUPROPION HYDROCHLORIDE\NALTREXONE HYDROCHLORIDE
     Dosage: STRENGTH: 90/8 MILLIGRAM AND  START DATE: 23/MAY/2021 (APPROXIMATELY)
     Route: 048
     Dates: start: 202105, end: 202106
  7. CONTRAVE [Suspect]
     Active Substance: BUPROPION HYDROCHLORIDE\NALTREXONE HYDROCHLORIDE
     Dosage: STRENGTH: 90/8 MILLIGRAM, START DATE: 03/JUN/2021 (APPROXIMATELY) AND DOSE: 2 TABLETS IN THE MORNING
     Route: 048
     Dates: start: 202106, end: 20210615

REACTIONS (8)
  - Pharyngitis streptococcal [Recovered/Resolved]
  - Fatigue [Recovered/Resolved]
  - Feeling jittery [Recovered/Resolved]
  - Asthenia [Unknown]
  - Feeling abnormal [Recovered/Resolved]
  - Palpitations [Recovered/Resolved]
  - Constipation [Recovered/Resolved]
  - Drug titration error [Unknown]

NARRATIVE: CASE EVENT DATE: 2021
